FAERS Safety Report 20670093 (Version 1)
Quarter: 2022Q2

REPORT INFORMATION
  Report Type: Spontaneous
  Country: US (occurrence: None)
  Receive Date: 20220401
  Receipt Date: 20220401
  Transmission Date: 20220721
  Serious: No
  Sender: FDA-Public Use
  Company Number: None

PATIENT
  Age: 46 Year
  Sex: Female

DRUGS (1)
  1. KESIMPTA [Suspect]
     Active Substance: OFATUMUMAB
     Dosage: 20MG  OTHER SUBCUTANEOUS?
     Route: 058
     Dates: start: 20220322, end: 20220401

REACTIONS (6)
  - Pharyngeal swelling [None]
  - Nasal congestion [None]
  - Pruritus [None]
  - Joint swelling [None]
  - Headache [None]
  - Therapy cessation [None]

NARRATIVE: CASE EVENT DATE: 20220401
